FAERS Safety Report 10171167 (Version 1)
Quarter: 2014Q2

REPORT INFORMATION
  Report Type: Spontaneous
  Country: CN (occurrence: CN)
  Receive Date: 20140514
  Receipt Date: 20140514
  Transmission Date: 20141212
  Serious: Yes (Hospitalization)
  Sender: FDA-Public Use
  Company Number: CN-BAYER-2014-068014

PATIENT
  Age: 78 Year
  Sex: Male
  Weight: 57 kg

DRUGS (2)
  1. BAYASPIRIN [Suspect]
     Indication: COAGULOPATHY
     Dosage: 0.2 G, QD
     Route: 048
     Dates: start: 20130824, end: 20131119
  2. TIROFIBAN HYDROCHLORIDE [Suspect]
     Indication: THROMBOSIS
     Dosage: 5 MG, QD
     Route: 042
     Dates: start: 20131024, end: 20131026

REACTIONS (1)
  - Coagulopathy [Recovering/Resolving]
